FAERS Safety Report 9556420 (Version 1)
Quarter: 2013Q3

REPORT INFORMATION
  Report Type: Spontaneous
  Country: IT (occurrence: None)
  Receive Date: 20130819
  Receipt Date: 20130819
  Transmission Date: 20140515
  Serious: Yes (Other)
  Sender: FDA-Public Use
  Company Number: 13IT006234

PATIENT
  Age: 73 Year
  Sex: Female

DRUGS (4)
  1. PAROXETINE [Suspect]
     Indication: DEPRESSION
     Dosage: 1 DF QD, ORAL
     Route: 048
     Dates: start: 20111109, end: 20121108
  2. FENTANYL [Suspect]
     Indication: PRODUCT USED FOR UNKNOWN INDICATION
     Dosage: 2 DF , 1/WEEK, TRANSDERMAL
     Route: 062
     Dates: start: 20111008, end: 20121108
  3. SERPAX (OXAZEPAM) [Suspect]
     Indication: PRODUCT USED FOR UNKNOWN INDICATION
     Dosage: 2 DF, QD, PO
     Route: 048
     Dates: start: 20120909, end: 20121108
  4. LEXOTAN [Suspect]
     Indication: PRODUCT USED FOR UNKNOWN INDICATION
     Dosage: 2 DF, QD, ORAL
     Route: 048
     Dates: start: 20111109, end: 20121108

REACTIONS (1)
  - Presyncope [None]
